FAERS Safety Report 15406583 (Version 2)
Quarter: 2018Q4

REPORT INFORMATION
  Report Type: Report from Study
  Country: US (occurrence: US)
  Receive Date: 20180920
  Receipt Date: 20181020
  Transmission Date: 20190204
  Serious: No
  Sender: FDA-Public Use
  Company Number: US-B.I. PHARMACEUTICALS,INC./RIDGEFIELD-2018-BI-045501

PATIENT
  Sex: Male

DRUGS (1)
  1. OFEV [Suspect]
     Active Substance: NINTEDANIB
     Indication: IDIOPATHIC PULMONARY FIBROSIS
     Dosage: 1 CAPSULE BID WITH FOOD 12 HOURS APART; STRENGTH: 150 MG;  ACTION TAKEN WITH PRODUCT: NOT REPORTED
     Route: 048
     Dates: start: 20180917

REACTIONS (1)
  - Dyspnoea [Not Recovered/Not Resolved]
